FAERS Safety Report 12419537 (Version 2)
Quarter: 2016Q2

REPORT INFORMATION
  Report Type: Spontaneous
  Country: NL (occurrence: NL)
  Receive Date: 20160531
  Receipt Date: 20160613
  Transmission Date: 20160815
  Serious: No
  Sender: FDA-Public Use
  Company Number: NL-PFIZER INC-2016275494

PATIENT
  Age: 61 Year
  Sex: Male

DRUGS (7)
  1. CARBASALAATCALCIUM [Concomitant]
     Active Substance: CARBASALATE
     Dosage: 100 MG, 1X/DAY
     Route: 048
     Dates: start: 200605
  2. DOXAZOSIN MESILATE [Suspect]
     Active Substance: DOXAZOSIN MESYLATE
     Indication: CARDIOVASCULAR EVENT PROPHYLAXIS
     Dosage: 8 MG, 1X/DAY
     Route: 048
     Dates: start: 20160120
  3. LISINOPRIL. [Suspect]
     Active Substance: LISINOPRIL
     Indication: CARDIOVASCULAR EVENT PROPHYLAXIS
     Dosage: 10 MG, 1X/DAY
     Route: 048
     Dates: start: 20160120
  4. HYDROCHLOORTHIAZIDE [Suspect]
     Active Substance: HYDROCHLOROTHIAZIDE
     Indication: CARDIOVASCULAR EVENT PROPHYLAXIS
     Dosage: 12.5 MG, 1X/DAY
     Route: 048
     Dates: start: 20160120
  5. PANTOPRAZOL [Concomitant]
     Active Substance: PANTOPRAZOLE SODIUM
     Dosage: 20 MG, 1X/DAY
     Route: 048
     Dates: start: 20160120
  6. NIFEDIPINE. [Suspect]
     Active Substance: NIFEDIPINE
     Indication: CARDIOVASCULAR EVENT PROPHYLAXIS
     Dosage: 30 MG, 1X/DAY
     Route: 048
     Dates: start: 20160120
  7. SOTALOL. [Concomitant]
     Active Substance: SOTALOL
     Dosage: 80 MG, 2X/DAY
     Route: 048
     Dates: start: 2001

REACTIONS (1)
  - Blood pressure fluctuation [Not Recovered/Not Resolved]

NARRATIVE: CASE EVENT DATE: 201601
